FAERS Safety Report 4444222-2 (Version None)
Quarter: 2004Q3

REPORT INFORMATION
  Report Type: 
  Country: None (occurrence: None)
  Receive Date: 20040902
  Receipt Date: 20040827
  Transmission Date: 20050211
  Serious: Yes (Other)
  Sender: FDA-Public Use
  Company Number: 207987

PATIENT
  Age: 66 Year
  Sex: Male
  Weight: 133.3 kg

DRUGS (13)
  1. XOLAIR [Suspect]
     Indication: ASTHMA
     Dosage: 375 MG, Q2W, SUBCUTANEOUS
     Route: 058
     Dates: start: 20040603
  2. IPRATROPIUM (IPRATROPIUM BROMIDE) [Concomitant]
  3. ALBUTEROL (ALBUTEROL SULFATE, ALBUTEROL) [Concomitant]
  4. TERAZOSIN (TERAZOSIN HYDROCHLORIDE) [Concomitant]
  5. CALCIUM (CALCIUM NOS) [Concomitant]
  6. POTASSIUM (POTASSIUM NOS) [Concomitant]
  7. VITAMIN C (ASCORBIC ACID) [Concomitant]
  8. COZAAR [Concomitant]
  9. LASIX [Concomitant]
  10. PREDNISONE [Concomitant]
  11. CANDESARTAN (CANDESARTAN) [Concomitant]
  12. AEROBID [Concomitant]
  13. OXYGEN (OXYGEN) [Concomitant]

REACTIONS (2)
  - BLOOD IMMUNOGLOBULIN E INCREASED [None]
  - DEEP VEIN THROMBOSIS [None]
